FAERS Safety Report 20854838 (Version 1)
Quarter: 2022Q2

REPORT INFORMATION
  Report Type: Spontaneous
  Country: US (occurrence: None)
  Receive Date: 20220520
  Receipt Date: 20220520
  Transmission Date: 20220721
  Serious: Yes (Hospitalization)
  Sender: FDA-Public Use
  Company Number: None

PATIENT
  Sex: Female
  Weight: 63.2 kg

DRUGS (1)
  1. CISPLATIN [Suspect]
     Active Substance: CISPLATIN

REACTIONS (5)
  - Vaginal haemorrhage [None]
  - Anaemia [None]
  - Syncope [None]
  - Thrombosis [None]
  - Tumour haemorrhage [None]

NARRATIVE: CASE EVENT DATE: 20220515
